FAERS Safety Report 7722645-3 (Version None)
Quarter: 2011Q3

REPORT INFORMATION
  Report Type: 
  Country: None (occurrence: None)
  Receive Date: 20110831
  Receipt Date: 20110822
  Transmission Date: 20111222
  Serious: Yes (Hospitalization)
  Sender: FDA-Public Use
  Company Number: BG-ASTRAZENECA-2011SE51213

PATIENT
  Sex: Male

DRUGS (2)
  1. SYMBICORT [Suspect]
     Indication: ASTHMA
     Dosage: 160 MICROGRAMS/4,5 MICROGRAMS, 2 INHALATIONS TWICE DAILY
     Route: 055
     Dates: start: 20110301
  2. VIREAD [Concomitant]
     Indication: HEPATITIS CHRONIC PERSISTENT
     Dates: start: 20110714

REACTIONS (1)
  - BLOOD CREATINE PHOSPHOKINASE INCREASED [None]
